FAERS Safety Report 9637906 (Version 4)
Quarter: 2013Q4

REPORT INFORMATION
  Report Type: Spontaneous
  Country: JP (occurrence: JP)
  Receive Date: 20131022
  Receipt Date: 20131220
  Transmission Date: 20140711
  Serious: No
  Sender: FDA-Public Use
  Company Number: JP-ELI_LILLY_AND_COMPANY-JP201309008372

PATIENT
  Age: 48 Year
  Sex: Female
  Weight: 50 kg

DRUGS (9)
  1. CYMBALTA [Suspect]
     Indication: DEPRESSION
     Dosage: 20 MG, QD
     Route: 048
     Dates: start: 20130301
  2. LEXAPRO [Suspect]
     Indication: DEPRESSION
     Dosage: 10 MG, QD
     Route: 048
     Dates: start: 201301
  3. PRIMPERAN [Suspect]
     Indication: NAUSEA
     Dosage: 1 DF, BID
     Route: 048
     Dates: start: 20130830
  4. SEPAZON [Concomitant]
     Indication: DEPRESSION
     Dosage: 1 MG, BID
     Route: 048
     Dates: start: 2003
  5. MAGMITT [Concomitant]
     Indication: CONSTIPATION
     Dosage: 660 MG, QD
     Route: 048
  6. CEPHARANTHIN [Concomitant]
     Indication: ALOPECIA AREATA
     Dosage: 1 MG, BID
     Route: 048
     Dates: start: 201211
  7. PROMAC                             /01312301/ [Concomitant]
     Indication: ALOPECIA AREATA
     Dosage: 75 MG, BID
     Route: 048
     Dates: start: 201211
  8. FERROMIA                           /00023520/ [Concomitant]
     Indication: IRON DEFICIENCY ANAEMIA
     Dosage: 50 MG, BID
     Route: 048
     Dates: start: 20130830
  9. SELBEX [Concomitant]
     Indication: NAUSEA
     Dosage: 100 MG, QD
     Route: 048
     Dates: start: 20130830

REACTIONS (1)
  - Hyperprolactinaemia [Recovering/Resolving]
